FAERS Safety Report 10882348 (Version 1)
Quarter: 2015Q1

REPORT INFORMATION
  Report Type: Spontaneous
  Country: US (occurrence: US)
  Receive Date: 20150303
  Receipt Date: 20150303
  Transmission Date: 20150721
  Serious: Yes (Other)
  Sender: FDA-Public Use
  Company Number: US-ABBVIE-14P-163-1235733-00

PATIENT
  Age: 29 Year
  Sex: Female

DRUGS (5)
  1. VALPROIC ACID. [Suspect]
     Active Substance: VALPROIC ACID
     Indication: IDIOPATHIC GENERALISED EPILEPSY
  2. VALPROIC ACID. [Suspect]
     Active Substance: VALPROIC ACID
  3. LEVETIRACETAM. [Suspect]
     Active Substance: LEVETIRACETAM
     Indication: IDIOPATHIC GENERALISED EPILEPSY
  4. LEVETIRACETAM. [Suspect]
     Active Substance: LEVETIRACETAM
  5. VALPROIC ACID. [Suspect]
     Active Substance: VALPROIC ACID

REACTIONS (2)
  - Generalised tonic-clonic seizure [Recovered/Resolved]
  - Condition aggravated [Recovered/Resolved]
